FAERS Safety Report 9843357 (Version 1)
Quarter: 2013Q4

REPORT INFORMATION
  Report Type: Spontaneous
  Country: US (occurrence: None)
  Receive Date: 20131223
  Receipt Date: 20131223
  Transmission Date: 20140711
  Serious: No
  Sender: FDA-Public Use
  Company Number: 219681LEO

PATIENT
  Sex: Male

DRUGS (1)
  1. PICATO (0.05 %) [Suspect]
     Indication: ACTINIC KERATOSIS
     Dosage: DAILY TOPICAL
     Dates: start: 20121115, end: 20121116

REACTIONS (3)
  - Off label use [None]
  - Incorrect dose administered [None]
  - No adverse event [None]
